FAERS Safety Report 17303364 (Version 3)
Quarter: 2021Q1

REPORT INFORMATION
  Report Type: Report from Study
  Country: JP (occurrence: JP)
  Receive Date: 20200122
  Receipt Date: 20210322
  Transmission Date: 20210419
  Serious: Yes (Hospitalization)
  Sender: FDA-Public Use
  Company Number: JP-EISAI MEDICAL RESEARCH-EC-2020-068718

PATIENT
  Age: 89 Year
  Sex: Male
  Weight: 76 kg

DRUGS (13)
  1. BAYASPIRIN [Concomitant]
     Active Substance: ASPIRIN
     Route: 048
  2. ADALAT CC [Concomitant]
     Active Substance: NIFEDIPINE
     Route: 048
  3. NU?LOTAN [Concomitant]
     Active Substance: LOSARTAN POTASSIUM
     Route: 048
  4. LENVATINIB [Suspect]
     Active Substance: LENVATINIB
     Route: 048
     Dates: start: 20200102, end: 20200111
  5. LENVATINIB [Suspect]
     Active Substance: LENVATINIB
     Indication: HEPATOCELLULAR CARCINOMA
     Route: 048
     Dates: start: 20191212, end: 20200101
  6. KERATINAMIN [Concomitant]
     Active Substance: UREA
     Route: 062
  7. BASEN OD [Concomitant]
     Active Substance: VOGLIBOSE
     Route: 048
  8. EUGLUCON [Concomitant]
     Active Substance: GLYBURIDE
     Route: 048
  9. BIO?THREE [Concomitant]
     Active Substance: HERBALS
     Route: 065
  10. MYSER [Concomitant]
     Route: 062
  11. ACINON [Concomitant]
     Active Substance: NIZATIDINE
     Route: 048
  12. ACTOS [Concomitant]
     Active Substance: PIOGLITAZONE HYDROCHLORIDE
     Route: 048
  13. SILECE [Concomitant]
     Active Substance: FLUNITRAZEPAM
     Route: 048

REACTIONS (1)
  - Decreased appetite [Recovering/Resolving]

NARRATIVE: CASE EVENT DATE: 20200113
